FAERS Safety Report 26087946 (Version 1)
Quarter: 2025Q4

REPORT INFORMATION
  Report Type: Spontaneous
  Country: EU (occurrence: EU)
  Receive Date: 20251125
  Receipt Date: 20251125
  Transmission Date: 20260117
  Serious: Yes (Hospitalization)
  Sender: CHEPLAPHARM
  Company Number: None

PATIENT
  Age: 54 Year
  Sex: Male
  Weight: 79 kg

DRUGS (9)
  1. QUETIAPINE [Suspect]
     Active Substance: QUETIAPINE
     Indication: Poisoning deliberate
     Dosage: 0-0-1?DAILY DOSE: 300 MILLIGRAM
     Route: 048
     Dates: start: 20251015, end: 20251015
  2. QUETIAPINE [Suspect]
     Active Substance: QUETIAPINE
     Indication: Poisoning deliberate
     Dosage: LONG TERM TREATMENT
  3. VENLAFAXINE [Suspect]
     Active Substance: VENLAFAXINE HYDROCHLORIDE
     Indication: Poisoning deliberate
     Dosage: NP
     Route: 048
     Dates: start: 20251015, end: 20251015
  4. OXAZEPAM [Suspect]
     Active Substance: OXAZEPAM
     Indication: Poisoning deliberate
     Dosage: 10 BOXES
     Route: 048
     Dates: start: 20251015, end: 20251015
  5. DIAZEPAM [Suspect]
     Active Substance: DIAZEPAM
  6. MIANSERIN [Suspect]
     Active Substance: MIANSERIN
     Dosage: 0-0-1?DAILY DOSE: 30 MILLIGRAM
  7. LIDOCAINE [Suspect]
     Active Substance: LIDOCAINE
  8. ACETAMINOPHEN [Suspect]
     Active Substance: ACETAMINOPHEN
  9. ALCOHOL [Suspect]
     Active Substance: ALCOHOL

REACTIONS (6)
  - Coma [Recovered/Resolved]
  - Respiratory distress [Recovered/Resolved]
  - Mydriasis [Recovered/Resolved]
  - Pneumonia [Unknown]
  - Hypothermia [Unknown]
  - Decubitus ulcer [Unknown]

NARRATIVE: CASE EVENT DATE: 20251001
